FAERS Safety Report 10177971 (Version 1)
Quarter: 2014Q2

REPORT INFORMATION
  Report Type: Spontaneous
  Country: GB (occurrence: GB)
  Receive Date: 20140516
  Receipt Date: 20140516
  Transmission Date: 20141212
  Serious: Yes (Other)
  Sender: FDA-Public Use
  Company Number: GB-ABBVIE-14P-167-1237720-00

PATIENT
  Sex: Female

DRUGS (1)
  1. HUMIRA [Suspect]
     Indication: PRODUCT USED FOR UNKNOWN INDICATION

REACTIONS (11)
  - Vertigo [Unknown]
  - Gait disturbance [Unknown]
  - Balance disorder [Unknown]
  - Nystagmus [Unknown]
  - Dizziness [Not Recovered/Not Resolved]
  - Dysarthria [Unknown]
  - Unevaluable event [Unknown]
  - Photophobia [Unknown]
  - Dizziness [Not Recovered/Not Resolved]
  - Disturbance in attention [Not Recovered/Not Resolved]
  - Headache [Unknown]
